FAERS Safety Report 19255999 (Version 4)
Quarter: 2021Q2

REPORT INFORMATION
  Report Type: Spontaneous
  Country: US (occurrence: US)
  Receive Date: 20210513
  Receipt Date: 20210617
  Transmission Date: 20210717
  Serious: No
  Sender: FDA-Public Use
  Company Number: US-SA-2021SA154331

PATIENT
  Age: 67 Year
  Sex: Female

DRUGS (1)
  1. LANTUS SOLOSTAR [Suspect]
     Active Substance: INSULIN GLARGINE
     Indication: TYPE 2 DIABETES MELLITUS
     Dosage: 46 IU, QD( (23 UNIT IN ONE LEG,AND THE 23 UNITS IN THE OTHER LEG)
     Route: 065

REACTIONS (3)
  - Wrong technique in product usage process [Unknown]
  - Skin mass [Unknown]
  - Urticaria [Unknown]
